FAERS Safety Report 16184313 (Version 1)
Quarter: 2019Q2

REPORT INFORMATION
  Report Type: Spontaneous
  Country: US (occurrence: US)
  Receive Date: 20190308
  Receipt Date: 20190308
  Transmission Date: 20190711
  Serious: No
  Sender: FDA-Public Use
  Company Number: None

PATIENT
  Age: 35 Year
  Sex: Female

DRUGS (4)
  1. FAMOTIDINE. [Concomitant]
     Active Substance: FAMOTIDINE
  2. THIAMINE HCL 100MG FRESENIUS KABI USA [Suspect]
     Active Substance: THIAMINE HYDROCHLORIDE
     Indication: DEHYDRATION
     Route: 042
     Dates: start: 20190209
  3. ONDANSETRON [Concomitant]
     Active Substance: ONDANSETRON
  4. MVI [Concomitant]
     Active Substance: VITAMINS

REACTIONS (3)
  - Dyspnoea [None]
  - Choking sensation [None]
  - Infusion related reaction [None]

NARRATIVE: CASE EVENT DATE: 20190228
